FAERS Safety Report 8595160-5 (Version None)
Quarter: 2012Q3

REPORT INFORMATION
  Report Type: 
  Country: None (occurrence: None)
  Receive Date: 20120815
  Receipt Date: 20120803
  Transmission Date: 20120928
  Serious: Yes (Hospitalization, Other)
  Sender: FDA-Public Use
  Company Number: SE-CELGENEUS-150-21880-11071577

PATIENT
  Sex: Female
  Weight: 92 kg

DRUGS (9)
  1. DEXAMETHASONE [Suspect]
     Route: 048
     Dates: start: 20100412, end: 20110705
  2. DEXAMETHASONE [Suspect]
     Route: 048
     Dates: start: 20110718, end: 20110727
  3. INNOHEP [Concomitant]
     Indication: PROPHYLAXIS
     Dosage: 4500 IU (INTERNATIONAL UNIT)
     Route: 058
     Dates: start: 20110417
  4. REVLIMID [Suspect]
     Dosage: 10 MILLIGRAM
     Route: 048
     Dates: start: 20110615, end: 20110705
  5. REVLIMID [Suspect]
     Dosage: 10 MILLIGRAM
     Route: 048
     Dates: start: 20110510
  6. REVLIMID [Suspect]
     Dosage: 10 MILLIGRAM
     Route: 048
     Dates: start: 20100722
  7. REVLIMID [Suspect]
     Dosage: 10 MILLIGRAM
     Route: 048
     Dates: start: 20110718, end: 20110727
  8. REVLIMID [Suspect]
     Indication: MULTIPLE MYELOMA
     Dosage: 25 MILLIGRAM
     Route: 048
  9. DEXAMETHASONE [Suspect]
     Indication: MULTIPLE MYELOMA
     Route: 048

REACTIONS (1)
  - COLON CANCER [None]
